FAERS Safety Report 6541588-4 (Version None)
Quarter: 2010Q1

REPORT INFORMATION
  Report Type: 
  Country: None (occurrence: None)
  Receive Date: 20100119
  Receipt Date: 20100114
  Transmission Date: 20100710
  Serious: Yes (Death)
  Sender: FDA-Public Use
  Company Number: TW-ROCHE-679338

PATIENT
  Age: 21 Year
  Sex: Male

DRUGS (5)
  1. TAMIFLU [Suspect]
     Indication: AVIAN INFLUENZA
     Route: 065
     Dates: start: 20100104
  2. FLU MEDICATION NOS [Concomitant]
     Indication: INFLUENZA
     Dates: start: 20100104
  3. MUCOLYTIC NOS [Concomitant]
     Indication: INFLUENZA
     Dates: start: 20100107
  4. APPETITE STIMULANT NOS [Concomitant]
     Dates: start: 20100107
  5. ANTITUSSIVE NOS [Concomitant]
     Indication: INFLUENZA
     Dosage: DRUG REPORTED: COUGH SUPPRESSANT NOS
     Dates: start: 20100107

REACTIONS (7)
  - DISSEMINATED INTRAVASCULAR COAGULATION [None]
  - HYPOAESTHESIA [None]
  - MULTI-ORGAN FAILURE [None]
  - NEPHRITIS [None]
  - PNEUMONIA [None]
  - RESPIRATORY FAILURE [None]
  - SEPTIC SHOCK [None]
